FAERS Safety Report 8604859-3 (Version None)
Quarter: 2012Q3

REPORT INFORMATION
  Report Type: 
  Country: None (occurrence: None)
  Receive Date: 20120808
  Receipt Date: 20120808
  Transmission Date: 20120928
  Serious: Yes (Other)
  Sender: FDA-Public Use
  Company Number: None

PATIENT
  Sex: Female

DRUGS (1)
  1. HUMIRA [Suspect]
     Indication: PSORIASIS
     Dosage: 40 MG EVERY 2 WEEKS SUB Q , STARTER KIT
     Route: 058
     Dates: start: 20120726

REACTIONS (4)
  - FALL [None]
  - CHEST PAIN [None]
  - CONDITION AGGRAVATED [None]
  - ASTHENIA [None]
